FAERS Safety Report 21911772 (Version 2)
Quarter: 2023Q1

REPORT INFORMATION
  Report Type: Spontaneous
  Country: FR (occurrence: FR)
  Receive Date: 20230125
  Receipt Date: 20230214
  Transmission Date: 20230417
  Serious: Yes (Other)
  Sender: FDA-Public Use
  Company Number: FR-TAKEDA-2022TUS095129

PATIENT
  Sex: Male
  Weight: 79 kg

DRUGS (7)
  1. DEXAMETHASONE [Suspect]
     Active Substance: DEXAMETHASONE
     Indication: Hodgkin^s disease
     Dosage: UNK
     Route: 065
  2. OXALIPLATIN [Suspect]
     Active Substance: OXALIPLATIN
     Indication: Hodgkin^s disease
     Dosage: UNK
     Route: 065
  3. BRENTUXIMAB VEDOTIN [Suspect]
     Active Substance: BRENTUXIMAB VEDOTIN
     Indication: Hodgkin^s disease
     Dosage: 1.8 MILLIGRAM/KILOGRAM, 3/WEEK
     Route: 042
     Dates: start: 20220930
  4. IFOSFAMIDE [Suspect]
     Active Substance: IFOSFAMIDE
     Indication: Hodgkin^s disease
     Dosage: UNK
     Route: 065
  5. CARBOPLATIN [Suspect]
     Active Substance: CARBOPLATIN
     Indication: Hodgkin^s disease
     Dosage: UNK
     Route: 065
  6. ETOPOSIDE [Suspect]
     Active Substance: ETOPOSIDE
     Indication: Hodgkin^s disease
     Dosage: UNK
     Route: 065
  7. CYTARABINE [Suspect]
     Active Substance: CYTARABINE
     Indication: Hodgkin^s disease
     Dosage: UNK
     Route: 065

REACTIONS (13)
  - Thrombocytopenia [Recovered/Resolved]
  - Cytopenia [Recovered/Resolved]
  - Aplasia [Recovered/Resolved]
  - Blood alkaline phosphatase abnormal [Unknown]
  - Haemoglobin abnormal [Unknown]
  - Gamma-glutamyltransferase abnormal [Unknown]
  - Alanine aminotransferase abnormal [Unknown]
  - Platelet count abnormal [Unknown]
  - Aspartate aminotransferase abnormal [Unknown]
  - Blood glucose abnormal [Unknown]
  - Blood albumin abnormal [Unknown]
  - Blood lactate dehydrogenase increased [Unknown]
  - Blood creatine increased [Unknown]
